FAERS Safety Report 10034979 (Version 2)
Quarter: 2014Q2

REPORT INFORMATION
  Report Type: Spontaneous
  Country: NL (occurrence: NL)
  Receive Date: 20140325
  Receipt Date: 20140530
  Transmission Date: 20141212
  Serious: No
  Sender: FDA-Public Use
  Company Number: NL-ELI_LILLY_AND_COMPANY-NL201403007732

PATIENT
  Age: 18 Year
  Sex: Male
  Weight: 76 kg

DRUGS (6)
  1. FLUOXETINE HYDROCHLORIDE [Suspect]
     Indication: DEPRESSION
     Dosage: 1 DF, QD
     Route: 065
     Dates: end: 201403
  2. LORAZEPAM [Interacting]
     Indication: DEPRESSION
     Dosage: 1 MG, PRN
     Route: 065
     Dates: start: 201312
  3. SEROQUEL [Interacting]
     Indication: DEPRESSION
     Dosage: 50 MG, QD
     Route: 065
     Dates: start: 201312
  4. MIRTAZAPINE [Interacting]
     Indication: SLEEP DISORDER
     Dosage: 30 MG, QD
     Route: 065
     Dates: start: 201312
  5. MIRTAZAPINE [Interacting]
     Indication: DEPRESSION
  6. PAROXETINE [Interacting]
     Indication: DEPRESSION
     Dosage: 30 MG, QD
     Route: 065
     Dates: start: 201311

REACTIONS (3)
  - Drug interaction [Not Recovered/Not Resolved]
  - Aggression [Not Recovered/Not Resolved]
  - Insomnia [Unknown]
